FAERS Safety Report 10173793 (Version 1)
Quarter: 2014Q2

REPORT INFORMATION
  Report Type: Spontaneous
  Country: FR (occurrence: None)
  Receive Date: 20140513
  Receipt Date: 20140513
  Transmission Date: 20141212
  Serious: Yes (Hospitalization)
  Sender: FDA-Public Use
  Company Number: 2014P1003799

PATIENT
  Age: 63 Year
  Sex: Male

DRUGS (3)
  1. HEPARIN [Suspect]
     Route: 042
     Dates: start: 2011
  2. ACENOCOUMAROL [Concomitant]
  3. ACETYLSALICYLIC ACID [Concomitant]

REACTIONS (15)
  - Antiphospholipid syndrome [None]
  - Heparin-induced thrombocytopenia [None]
  - Adrenal insufficiency [None]
  - Pyrexia [None]
  - Dyspnoea [None]
  - Hypoxia [None]
  - Left ventricular dysfunction [None]
  - Back pain [None]
  - Interstitial lung disease [None]
  - Multi-organ failure [None]
  - Respiratory failure [None]
  - Renal failure [None]
  - Hepatic failure [None]
  - Pancreatitis [None]
  - Coagulopathy [None]
